FAERS Safety Report 9524934 (Version 1)
Quarter: 2013Q3

REPORT INFORMATION
  Report Type: Spontaneous
  Country: US (occurrence: US)
  Receive Date: 20130916
  Receipt Date: 20130916
  Transmission Date: 20140515
  Serious: Yes (Life-Threatening, Hospitalization)
  Sender: FDA-Public Use
  Company Number: US-ROCHE-1276089

PATIENT
  Age: 66 Year
  Sex: Male

DRUGS (2)
  1. CELLCEPT [Suspect]
     Indication: MYASTHENIA GRAVIS
     Route: 065
  2. PREDNISONE [Suspect]
     Indication: MYASTHENIA GRAVIS
     Route: 065

REACTIONS (2)
  - Hyponatraemia [Not Recovered/Not Resolved]
  - Inappropriate antidiuretic hormone secretion [Not Recovered/Not Resolved]
